FAERS Safety Report 19883856 (Version 2)
Quarter: 2022Q1

REPORT INFORMATION
  Report Type: Spontaneous
  Country: US (occurrence: US)
  Receive Date: 20210927
  Receipt Date: 20220222
  Transmission Date: 20220423
  Serious: Yes (Other)
  Sender: FDA-Public Use
  Company Number: US-BRISTOL-MYERS SQUIBB COMPANY-BMS-2021-093775

PATIENT
  Age: 68 Year
  Sex: Male
  Weight: 60.5 kg

DRUGS (1)
  1. OPDIVO [Suspect]
     Active Substance: NIVOLUMAB
     Indication: Lung carcinoma cell type unspecified stage IV
     Dosage: 180 MILLIGRAM, Q2WK
     Route: 065

REACTIONS (4)
  - Clostridium difficile infection [Unknown]
  - Malaise [Unknown]
  - Thinking abnormal [Unknown]
  - Prescribed underdose [Unknown]
